FAERS Safety Report 11874128 (Version 1)
Quarter: 2015Q4

REPORT INFORMATION
  Report Type: Report from Study
  Country: US (occurrence: US)
  Receive Date: 20151229
  Receipt Date: 20151229
  Transmission Date: 20160305
  Serious: No
  Sender: FDA-Public Use
  Company Number: PHEH2015US008731

PATIENT
  Sex: Female
  Weight: 52.16 kg

DRUGS (1)
  1. NEORAL [Suspect]
     Active Substance: CYCLOSPORINE
     Indication: RENAL TRANSPLANT
     Dosage: 75 MG, BID
     Route: 048

REACTIONS (16)
  - Ovarian cyst [Unknown]
  - Anaemia [Unknown]
  - Nasopharyngitis [Recovered/Resolved]
  - Renal pain [Unknown]
  - Hyperparathyroidism [Unknown]
  - Blood urea increased [Unknown]
  - Pain [Unknown]
  - Upper respiratory tract infection [Unknown]
  - Tinea versicolour [Unknown]
  - Red cell distribution width increased [Unknown]
  - Visual impairment [Unknown]
  - Mean cell haemoglobin decreased [Unknown]
  - Blood creatine increased [Unknown]
  - Hyperlipidaemia [Unknown]
  - Rash [Unknown]
  - Hypertension [Unknown]
